FAERS Safety Report 18349070 (Version 1)
Quarter: 2020Q4

REPORT INFORMATION
  Report Type: Spontaneous
  Country: US (occurrence: US)
  Receive Date: 20201006
  Receipt Date: 20201006
  Transmission Date: 20210114
  Serious: Yes (Hospitalization)
  Sender: FDA-Public Use
  Company Number: US-MYLANLABS-2020M1083905

PATIENT
  Age: 30 Year
  Sex: Female

DRUGS (1)
  1. LIOTHYRONINE [Suspect]
     Active Substance: LIOTHYRONINE
     Indication: HYPOTHYROIDISM
     Dosage: SHE WAS SWITCHED TO COMPOUNDED LIOTHYRONINE 15MICROG CONTROLLED-RELEASE CAPSULES ...
     Route: 048

REACTIONS (5)
  - Overdose [Unknown]
  - Hyperthyroidism [Recovered/Resolved]
  - Product preparation error [Unknown]
  - Confusional state [Unknown]
  - Disorientation [Unknown]
